FAERS Safety Report 16386805 (Version 1)
Quarter: 2019Q2

REPORT INFORMATION
  Report Type: Report from Study
  Country: BR (occurrence: BR)
  Receive Date: 20190604
  Receipt Date: 20190604
  Transmission Date: 20190711
  Serious: Yes (Life-Threatening, Hospitalization, Other)
  Sender: FDA-Public Use
  Company Number: BR-UCBSA-2019022772

PATIENT
  Age: 7 Month
  Sex: Male
  Weight: 10 kg

DRUGS (15)
  1. LEVETIRACETAM. [Suspect]
     Active Substance: LEVETIRACETAM
     Indication: INFANTILE SPASMS
     Dosage: 1.5 MILLILITER, 2X/DAY (BID)
     Route: 048
     Dates: start: 201810
  2. LEVETIRACETAM. [Suspect]
     Active Substance: LEVETIRACETAM
     Indication: EPILEPSY
  3. TOPIRAMATO [Concomitant]
     Active Substance: TOPIRAMATE
     Indication: INFANTILE SPASMS
  4. FENOBARBITAL [Concomitant]
     Active Substance: PHENOBARBITAL
     Indication: EPILEPSY
     Dosage: UNK
     Route: 048
  5. AMITRIPTILINA [Concomitant]
     Active Substance: AMITRIPTYLINE HYDROCHLORIDE
     Indication: EPILEPSY
  6. VIGABATRINA [Concomitant]
     Indication: EPILEPSY
     Dosage: UNK
     Route: 048
  7. LEVETIRACETAM. [Suspect]
     Active Substance: LEVETIRACETAM
     Indication: OFF LABEL USE
  8. TOPIRAMATO [Concomitant]
     Active Substance: TOPIRAMATE
     Indication: EPILEPSY
     Dosage: 25 MILLIGRAM, 2X/DAY (BID)
  9. VALPROIC ACID. [Concomitant]
     Active Substance: VALPROIC ACID
     Indication: EPILEPSY
  10. CLEXANE [Concomitant]
     Active Substance: ENOXAPARIN SODIUM
     Indication: EPILEPSY
     Dosage: UNK
     Route: 048
  11. VALPROIC ACID. [Concomitant]
     Active Substance: VALPROIC ACID
     Indication: INFANTILE SPASMS
     Dosage: 5 MILLILITER, 3X/DAY (TID)
  12. CLOBAZAM. [Concomitant]
     Active Substance: CLOBAZAM
     Indication: UNEVALUABLE EVENT
     Dosage: UNK
     Route: 048
  13. BACLOFENO [Concomitant]
     Indication: INFANTILE SPASMS
     Dosage: 10 MILLIGRAM, 3X/DAY (TID)
  14. BACLOFENO [Concomitant]
     Indication: EPILEPSY
  15. AMITRIPTILINA [Concomitant]
     Active Substance: AMITRIPTYLINE HYDROCHLORIDE
     Indication: INFANTILE SPASMS
     Dosage: 2.5 MILLILITER, 3X/DAY (TID)

REACTIONS (3)
  - Respiratory arrest [Recovered/Resolved with Sequelae]
  - Pneumonia [Recovered/Resolved]
  - Off label use [Unknown]

NARRATIVE: CASE EVENT DATE: 201810
